FAERS Safety Report 14957375 (Version 2)
Quarter: 2018Q3

REPORT INFORMATION
  Report Type: Spontaneous
  Country: JP (occurrence: JP)
  Receive Date: 20180531
  Receipt Date: 20180720
  Transmission Date: 20181010
  Serious: Yes (Hospitalization)
  Sender: FDA-Public Use
  Company Number: JP-009507513-1706JPN000834J

PATIENT
  Age: 69 Year
  Sex: Male
  Weight: 81 kg

DRUGS (7)
  1. SENNOSIDE [Concomitant]
     Active Substance: SENNOSIDES
     Indication: PROPHYLAXIS
     Dosage: 24 MG, PRN
     Route: 048
  2. OSPAIN [Concomitant]
     Active Substance: ETODOLAC
     Dosage: 200 MG, BID
     Route: 048
     Dates: end: 20170412
  3. KEYTRUDA [Suspect]
     Active Substance: PEMBROLIZUMAB
     Indication: NON-SMALL CELL LUNG CANCER
     Dosage: 200 MG, Q3W
     Route: 041
     Dates: start: 20170404
  4. LYRICA [Suspect]
     Active Substance: PREGABALIN
     Indication: PAIN
     Dosage: 25 MG, BID
     Route: 048
     Dates: start: 20170404, end: 20170526
  5. OXYCONTIN [Concomitant]
     Active Substance: OXYCODONE HYDROCHLORIDE
     Dosage: 10 MG, BID
     Route: 048
     Dates: end: 20170905
  6. MAGMITT [Concomitant]
     Active Substance: MAGNESIUM OXIDE
     Indication: PROPHYLAXIS
     Dosage: 330 MG, TID
     Route: 048
  7. OXINORM [Concomitant]
     Dosage: 5 MG, PRN
     Route: 048
     Dates: end: 20171205

REACTIONS (9)
  - Liver disorder [Recovering/Resolving]
  - Hepatic function abnormal [Recovered/Resolved]
  - Decreased appetite [Recovering/Resolving]
  - Pain in extremity [Recovering/Resolving]
  - Stomatitis [Recovered/Resolved]
  - Nausea [Recovering/Resolving]
  - Nasopharyngitis [Recovered/Resolved]
  - Eyelid ptosis [Recovered/Resolved]
  - Insomnia [Recovering/Resolving]

NARRATIVE: CASE EVENT DATE: 20170418
